FAERS Safety Report 21788301 (Version 1)
Quarter: 2022Q4

REPORT INFORMATION
  Report Type: Spontaneous
  Country: US (occurrence: US)
  Receive Date: 20221228
  Receipt Date: 20221228
  Transmission Date: 20230113
  Serious: Yes (Other)
  Sender: FDA-Public Use
  Company Number: US-MYLANLABS-2022M1144454

PATIENT
  Age: 27 Year
  Sex: Female

DRUGS (3)
  1. PAMIDRONATE [Suspect]
     Active Substance: PAMIDRONATE DISODIUM
     Indication: Fibrous dysplasia of bone
     Dosage: 60 MILLIGRAM, CYCLE (60MG PER DAY FOR TOTAL OF 180MG OVER 3 DAYS, EVERY 6 MONTHS)
     Route: 042
  2. CALCIUM [Concomitant]
     Active Substance: CALCIUM
     Indication: Fibrous dysplasia of bone
     Dosage: 1200 MILLIGRAM, QD
     Route: 065
  3. VITAMIN D [Concomitant]
     Active Substance: VITAMIN D NOS
     Indication: Fibrous dysplasia of bone
     Dosage: 2000 INTERNATIONAL UNIT, QD
     Route: 065

REACTIONS (3)
  - Drug ineffective for unapproved indication [Unknown]
  - Pain [Unknown]
  - Off label use [Unknown]
